FAERS Safety Report 9672424 (Version 3)
Quarter: 2013Q4

REPORT INFORMATION
  Report Type: Spontaneous
  Country: JP (occurrence: JP)
  Receive Date: 20131106
  Receipt Date: 20131223
  Transmission Date: 20140711
  Serious: Yes (Life-Threatening)
  Sender: FDA-Public Use
  Company Number: JP-ROCHE-1300314

PATIENT
  Age: 50 Year
  Sex: Male

DRUGS (5)
  1. GRTPA [Suspect]
     Indication: EMBOLIC STROKE
     Dosage: AT 4:15 AND 4:47
     Route: 042
     Dates: start: 20120121
  2. GRTPA [Suspect]
     Indication: CEREBRAL INFARCTION
  3. ADRENALIN [Concomitant]
  4. ATROPINE SULFATE [Concomitant]
  5. WARFARIN POTASSIUM [Concomitant]

REACTIONS (1)
  - Acute myocardial infarction [Recovering/Resolving]
